FAERS Safety Report 19357087 (Version 1)
Quarter: 2021Q2

REPORT INFORMATION
  Report Type: Spontaneous
  Country: US (occurrence: US)
  Receive Date: 20210602
  Receipt Date: 20210602
  Transmission Date: 20210717
  Serious: Yes (Hospitalization)
  Sender: FDA-Public Use
  Company Number: US-ROCHE-2840309

PATIENT

DRUGS (1)
  1. ACTIVASE [Suspect]
     Active Substance: ALTEPLASE
     Indication: ISCHAEMIC STROKE
     Dosage: ONGOING: NO
     Route: 065
     Dates: start: 2021

REACTIONS (4)
  - Aneurysm [Unknown]
  - Headache [Unknown]
  - Haemorrhage [Unknown]
  - Arteriovenous malformation [Unknown]

NARRATIVE: CASE EVENT DATE: 2021
